FAERS Safety Report 14403792 (Version 2)
Quarter: 2018Q1

REPORT INFORMATION
  Report Type: Spontaneous
  Country: JP (occurrence: JP)
  Receive Date: 20180117
  Receipt Date: 20180302
  Transmission Date: 20180509
  Serious: Yes (Disabling, Other)
  Sender: FDA-Public Use
  Company Number: JP-ELI_LILLY_AND_COMPANY-JP201711006276

PATIENT
  Age: 83 Year
  Sex: Male
  Weight: 55 kg

DRUGS (2)
  1. ERBITUX [Suspect]
     Active Substance: CETUXIMAB
     Dosage: 400 MG, WEEKLY (1/W)
     Route: 065
     Dates: start: 20170815
  2. ERBITUX [Suspect]
     Active Substance: CETUXIMAB
     Indication: OROPHARYNGEAL CANCER
     Dosage: 630 MG, UNKNOWN
     Route: 041
     Dates: start: 20170808

REACTIONS (8)
  - Osteomyelitis [Recovered/Resolved with Sequelae]
  - Bacterial infection [Recovered/Resolved]
  - Paronychia [Recovered/Resolved]
  - Skin fissures [Unknown]
  - Skin wound [Recovered/Resolved]
  - Radiation skin injury [Unknown]
  - Malaise [Unknown]
  - Dry skin [Unknown]

NARRATIVE: CASE EVENT DATE: 2017
